FAERS Safety Report 7751540-9 (Version None)
Quarter: 2011Q3

REPORT INFORMATION
  Report Type: 
  Country: None (occurrence: None)
  Receive Date: 20110914
  Receipt Date: 20110908
  Transmission Date: 20111222
  Serious: Yes (Hospitalization)
  Sender: FDA-Public Use
  Company Number: PHHO2011NL15272

PATIENT
  Sex: Male
  Weight: 81.3 kg

DRUGS (3)
  1. PREDNISONE [Suspect]
     Indication: TRANSPLANT REJECTION
  2. CERTICAN [Suspect]
     Indication: RENAL TRANSPLANT
     Dosage: 0.75 MG, BID
     Dates: start: 20110719, end: 20110907
  3. MYCOPHENOLATE MOFETIL [Suspect]
     Indication: TRANSPLANT REJECTION

REACTIONS (1)
  - TRANSPLANT REJECTION [None]
